FAERS Safety Report 6997140-X (Version None)
Quarter: 2010Q3

REPORT INFORMATION
  Report Type: 
  Country: None (occurrence: None)
  Receive Date: 20100918
  Receipt Date: 20090917
  Transmission Date: 20110219
  Serious: No
  Sender: FDA-Public Use
  Company Number: US-WYE-H11074509

PATIENT
  Sex: Female
  Weight: 104.42 kg

DRUGS (8)
  1. PRISTIQ [Suspect]
     Indication: DEPRESSION
     Route: 048
     Dates: start: 20090828, end: 20090901
  2. PRISTIQ [Suspect]
     Route: 048
     Dates: start: 20090901
  3. METFORMIN [Concomitant]
  4. ACUTRIM [Concomitant]
  5. LISINOPRIL [Concomitant]
  6. EVISTA [Concomitant]
  7. GLYBURIDE [Concomitant]
  8. ACTOS [Concomitant]

REACTIONS (9)
  - BURNING SENSATION [None]
  - CRYING [None]
  - DRUG WITHDRAWAL SYNDROME [None]
  - FUNGAL INFECTION [None]
  - HEADACHE [None]
  - OEDEMA PERIPHERAL [None]
  - PAIN [None]
  - PRURITUS [None]
  - URINARY TRACT INFECTION [None]
